FAERS Safety Report 13466581 (Version 1)
Quarter: 2017Q2

REPORT INFORMATION
  Report Type: Spontaneous
  Country: US (occurrence: US)
  Receive Date: 20170420
  Receipt Date: 20170420
  Transmission Date: 20170830
  Serious: Yes (Death)
  Sender: FDA-Public Use
  Company Number: None

PATIENT
  Age: 52 Year
  Sex: Female

DRUGS (1)
  1. IBRANCE [Suspect]
     Active Substance: PALBOCICLIB
     Indication: BREAST NEOPLASM
     Dosage: 125MG DAILY X 21 DAYS, 7 DAYS OFF BY MOUTH
     Route: 048
     Dates: start: 20160428, end: 20170123

REACTIONS (2)
  - Disease progression [None]
  - Therapy non-responder [None]
